FAERS Safety Report 9927404 (Version 2)
Quarter: 2014Q1

REPORT INFORMATION
  Report Type: Spontaneous
  Country: TR (occurrence: TR)
  Receive Date: 20140226
  Receipt Date: 20140303
  Transmission Date: 20141002
  Serious: Yes (Death, Hospitalization)
  Sender: FDA-Public Use
  Company Number: PHHY2014TR022059

PATIENT
  Age: 65 Year
  Sex: Female
  Weight: 85 kg

DRUGS (3)
  1. AFINITOR [Suspect]
     Indication: PANCREATIC NEUROENDOCRINE TUMOUR
     Dosage: 10 MG
  2. NORVASK//AMLODIPINE BESILATE [Concomitant]
     Indication: HYPERTENSION
     Dosage: 10 MG
  3. SANDOSTATIN LAR [Concomitant]
     Indication: NEUROENDOCRINE TUMOUR
     Dosage: 30 MG, ONCE EVERY 28 DAYS
     Route: 030
     Dates: start: 20100420

REACTIONS (4)
  - Pulmonary oedema [Fatal]
  - Pericardial effusion [Fatal]
  - Blood glucose decreased [Unknown]
  - Generalised oedema [Unknown]
